FAERS Safety Report 7239614-2 (Version None)
Quarter: 2011Q1

REPORT INFORMATION
  Report Type: 
  Country: None (occurrence: None)
  Receive Date: 20110122
  Receipt Date: 20110117
  Transmission Date: 20110831
  Serious: No
  Sender: FDA-Public Use
  Company Number: US-B.I. PHARMACEUTICALS,INC./RIDGEFIELD-2011-BP-01351BP

PATIENT
  Age: 60 Year
  Sex: Male

DRUGS (5)
  1. PRILOSEC [Concomitant]
     Indication: PROPHYLAXIS
     Route: 048
  2. ASA [Concomitant]
     Indication: ATRIAL FIBRILLATION
     Dosage: 81 MG
     Route: 048
  3. LIPITOR [Concomitant]
     Indication: PROPHYLAXIS
     Dosage: 5 MG
     Route: 048
  4. TIKOSYN [Concomitant]
     Indication: ATRIAL FIBRILLATION
     Route: 048
  5. PRADAXA [Suspect]
     Indication: ATRIAL FIBRILLATION
     Dosage: 300 MG
     Route: 048
     Dates: start: 20101101

REACTIONS (5)
  - ANORECTAL DISCOMFORT [None]
  - ANAL HAEMORRHAGE [None]
  - RECTAL DISCHARGE [None]
  - DIARRHOEA [None]
  - VIRAL INFECTION [None]
